FAERS Safety Report 22086839 (Version 1)
Quarter: 2023Q1

REPORT INFORMATION
  Report Type: Report from Study
  Country: CA (occurrence: CA)
  Receive Date: 20230312
  Receipt Date: 20230312
  Transmission Date: 20230417
  Serious: Yes (Other)
  Sender: FDA-Public Use
  Company Number: CA-002147023-NVSC2022CA282185

PATIENT
  Age: 79 Year
  Sex: Male

DRUGS (4)
  1. TAFINLAR [Suspect]
     Active Substance: DABRAFENIB MESYLATE
     Indication: Metastatic malignant melanoma
     Dosage: 150 MG, BID
     Route: 048
     Dates: start: 20221031
  2. TAFINLAR [Suspect]
     Active Substance: DABRAFENIB MESYLATE
     Indication: BRAF V600E mutation positive
     Dosage: 75 MG, BID
     Route: 065
  3. MEKINIST [Suspect]
     Active Substance: TRAMETINIB DIMETHYL SULFOXIDE
     Indication: Metastatic malignant melanoma
     Dosage: 2 MG, QD
     Route: 048
     Dates: start: 20221031
  4. MEKINIST [Suspect]
     Active Substance: TRAMETINIB DIMETHYL SULFOXIDE
     Indication: BRAF V600E mutation positive

REACTIONS (14)
  - Seizure [Unknown]
  - Fall [Unknown]
  - Hyperhidrosis [Unknown]
  - Movement disorder [Unknown]
  - Nasopharyngitis [Unknown]
  - Decreased appetite [Unknown]
  - Asthenia [Unknown]
  - Fatigue [Unknown]
  - Chills [Unknown]
  - Pyrexia [Unknown]
  - Rash macular [Unknown]
  - Pruritus [Unknown]
  - Rash [Recovering/Resolving]
  - Constipation [Unknown]

NARRATIVE: CASE EVENT DATE: 20220101
